FAERS Safety Report 6269278-6 (Version None)
Quarter: 2009Q3

REPORT INFORMATION
  Report Type: 
  Country: None (occurrence: None)
  Receive Date: 20090715
  Receipt Date: 20090708
  Transmission Date: 20100115
  Serious: Yes (Death)
  Sender: FDA-Public Use
  Company Number: US-CELGENEUS-163-21880-08121792

PATIENT
  Sex: Female

DRUGS (5)
  1. REVLIMID [Suspect]
     Indication: MULTIPLE MYELOMA
     Route: 048
     Dates: start: 20081010, end: 20081001
  2. REVLIMID [Suspect]
     Route: 048
     Dates: start: 20080501, end: 20080901
  3. REVLIMID [Suspect]
     Route: 048
     Dates: start: 20061229, end: 20070201
  4. THALOMID [Suspect]
     Indication: MULTIPLE MYELOMA
     Route: 048
     Dates: start: 20090101
  5. THALOMID [Suspect]
     Route: 048
     Dates: start: 20081230

REACTIONS (4)
  - BLOOD COUNT ABNORMAL [None]
  - DRUG INEFFECTIVE [None]
  - MULTIPLE MYELOMA [None]
  - RED BLOOD CELL COUNT DECREASED [None]
